FAERS Safety Report 11387219 (Version 1)
Quarter: 2015Q3

REPORT INFORMATION
  Report Type: Spontaneous
  Country: US (occurrence: US)
  Receive Date: 20150817
  Receipt Date: 20150817
  Transmission Date: 20151125
  Serious: Yes (Other)
  Sender: FDA-Public Use
  Company Number: US-AMGEN-USASP2015081829

PATIENT
  Age: 63 Year
  Sex: Male

DRUGS (11)
  1. TOPAMAX [Concomitant]
     Active Substance: TOPIRAMATE
     Dosage: 200 MG, UNK
     Route: 048
  2. SELZENTRY [Concomitant]
     Active Substance: MARAVIROC
     Dosage: 150 MG, UNK
     Route: 048
  3. NORVIR [Concomitant]
     Active Substance: RITONAVIR
     Dosage: 100 MG, UNK
  4. SIMVASTATIN. [Concomitant]
     Active Substance: SIMVASTATIN
     Dosage: 20 MG, UNK
     Route: 048
  5. NPLATE [Suspect]
     Active Substance: ROMIPLOSTIM
     Indication: THROMBOCYTOPENIA
     Dosage: UNK
     Route: 065
  6. VIIBRYD [Concomitant]
     Active Substance: VILAZODONE HYDROCHLORIDE
     Dosage: 40 MG, UNK
     Route: 048
  7. PRISTIQ EXTENDED RELEASE [Concomitant]
     Active Substance: DESVENLAFAXINE SUCCINATE
     Dosage: 50 MG, UNK
     Route: 048
  8. NORTHERA [Suspect]
     Active Substance: DROXIDOPA
     Indication: HIV INFECTION
     Dosage: 600 MG, TID
     Route: 048
  9. OMEPRAZOLE. [Concomitant]
     Active Substance: OMEPRAZOLE
     Dosage: 40 MG, UNK
  10. NEURONTIN [Concomitant]
     Active Substance: GABAPENTIN
     Dosage: 300 MG, UNK
  11. MORPHINE SULF [Concomitant]
     Active Substance: MORPHINE SULFATE
     Dosage: 15 MG, QD
     Route: 048

REACTIONS (4)
  - Platelet count decreased [Unknown]
  - Fatigue [Unknown]
  - Blister [Unknown]
  - Hypotension [Unknown]
